FAERS Safety Report 24608367 (Version 2)
Quarter: 2024Q4

REPORT INFORMATION
  Report Type: Spontaneous
  Country: DE (occurrence: DE)
  Receive Date: 20241112
  Receipt Date: 20241114
  Transmission Date: 20250115
  Serious: Yes (Other)
  Sender: PFIZER
  Company Number: DE-PFIZER INC-202400297649

PATIENT
  Age: 49 Year
  Sex: Male

DRUGS (2)
  1. LORLATINIB [Suspect]
     Active Substance: LORLATINIB
     Indication: Non-small cell lung cancer
     Dosage: 100 MG START
  2. LORLATINIB [Suspect]
     Active Substance: LORLATINIB
     Dosage: REDUCED TO 50 MG

REACTIONS (5)
  - Brain oedema [Unknown]
  - Radiation necrosis [Unknown]
  - Nervous system disorder [Unknown]
  - Neoplasm progression [Unknown]
  - Off label use [Unknown]
